FAERS Safety Report 8288669-5 (Version None)
Quarter: 2012Q2

REPORT INFORMATION
  Report Type: 
  Country: None (occurrence: None)
  Receive Date: 20120417
  Receipt Date: 20120410
  Transmission Date: 20120825
  Serious: Yes (Hospitalization)
  Sender: FDA-Public Use
  Company Number: JP-SP-2012-02766

PATIENT
  Sex: Male
  Weight: 71 kg

DRUGS (1)
  1. IMMUCYST [Suspect]
     Indication: BLADDER CANCER
     Route: 043
     Dates: start: 20070706, end: 20070831

REACTIONS (4)
  - DISSEMINATED TUBERCULOSIS [None]
  - CHEST X-RAY ABNORMAL [None]
  - MASS [None]
  - PYREXIA [None]
